FAERS Safety Report 6349233-8 (Version None)
Quarter: 2009Q3

REPORT INFORMATION
  Report Type: 
  Country: None (occurrence: None)
  Receive Date: 20090911
  Receipt Date: 20090902
  Transmission Date: 20100115
  Serious: Yes (Hospitalization, Congenital Anomaly)
  Sender: FDA-Public Use
  Company Number: A0681086A

PATIENT
  Sex: Male
  Weight: 4.2 kg

DRUGS (2)
  1. PAXIL [Suspect]
     Indication: DEPRESSION
     Dosage: 10MG PER DAY
     Dates: start: 19940101, end: 20030101
  2. VITAMIN TAB [Concomitant]

REACTIONS (11)
  - AORTIC STENOSIS [None]
  - ATRIAL SEPTAL DEFECT [None]
  - CONGENITAL FLAT FEET [None]
  - DRUG EXPOSURE DURING PREGNANCY [None]
  - HYPOPLASTIC LEFT HEART SYNDROME [None]
  - MIGRAINE [None]
  - MITRAL VALVE STENOSIS [None]
  - PATENT DUCTUS ARTERIOSUS [None]
  - PULMONARY HYPERTENSION [None]
  - RIGHT AORTIC ARCH [None]
  - TRICUSPID VALVE INCOMPETENCE [None]
